FAERS Safety Report 22259511 (Version 4)
Quarter: 2023Q2

REPORT INFORMATION
  Report Type: Spontaneous
  Country: FI (occurrence: FI)
  Receive Date: 20230427
  Receipt Date: 20230619
  Transmission Date: 20230721
  Serious: Yes (Other)
  Sender: FDA-Public Use
  Company Number: FI-SANOFI-01585425

PATIENT
  Age: 65 Year
  Sex: Male

DRUGS (11)
  1. TOUJEO [Suspect]
     Active Substance: INSULIN GLARGINE
     Indication: Type 2 diabetes mellitus
     Dosage: 10 IU
     Dates: start: 20211021
  2. TOUJEO [Suspect]
     Active Substance: INSULIN GLARGINE
     Dosage: 24 IU
  3. TOUJEO [Suspect]
     Active Substance: INSULIN GLARGINE
     Dosage: 54 IU
     Route: 065
     Dates: end: 20230319
  4. APIDRA [Concomitant]
     Active Substance: INSULIN GLULISINE
     Indication: Type 2 diabetes mellitus
     Dosage: 40 IU
  5. ATACAND [Concomitant]
     Active Substance: CANDESARTAN CILEXETIL
     Dosage: UNK
  6. SPIRONOLACTONE [Concomitant]
     Active Substance: SPIRONOLACTONE
     Dosage: UNK
  7. LERCANIDIPINE HYDROCHLORIDE [Concomitant]
     Active Substance: LERCANIDIPINE HYDROCHLORIDE
     Dosage: UNK
  8. BISOPROLOL FUMARATE [Concomitant]
     Active Substance: BISOPROLOL FUMARATE
     Dosage: UNK
  9. NITROFUR-C [Concomitant]
     Dosage: UNK
  10. VITAMIN D NOS [Concomitant]
     Active Substance: VITAMIN D NOS
     Dosage: UNK
  11. CARBOHYDRATES [Concomitant]
     Active Substance: CARBOHYDRATES
     Dosage: UNK

REACTIONS (16)
  - Anal ulcer haemorrhage [Recovered/Resolved]
  - Acarodermatitis [Recovered/Resolved]
  - Eye pain [Recovered/Resolved]
  - Nasal congestion [Recovered/Resolved]
  - Erythema [Recovering/Resolving]
  - Arthralgia [Recovered/Resolved]
  - Joint swelling [Recovered/Resolved]
  - Gait disturbance [Recovered/Resolved]
  - Myalgia [Recovering/Resolving]
  - Skin exfoliation [Recovered/Resolved]
  - Scab [Recovered/Resolved]
  - Peripheral swelling [Recovered/Resolved]
  - Pruritus [Recovered/Resolved]
  - Rash pruritic [Not Recovered/Not Resolved]
  - Blood glucose increased [Unknown]
  - Condition aggravated [Unknown]

NARRATIVE: CASE EVENT DATE: 20211101
